FAERS Safety Report 20045677 (Version 1)
Quarter: 2021Q4

REPORT INFORMATION
  Report Type: Report from Study
  Country: US (occurrence: US)
  Receive Date: 20211108
  Receipt Date: 20211108
  Transmission Date: 20220303
  Serious: Yes (Other)
  Sender: FDA-Public Use
  Company Number: US-ABBVIE-21K-163-4144409-00

PATIENT
  Sex: Female

DRUGS (5)
  1. RINVOQ [Suspect]
     Active Substance: UPADACITINIB
     Indication: Rheumatoid arthritis
     Route: 048
     Dates: start: 20200504
  2. RINVOQ [Suspect]
     Active Substance: UPADACITINIB
     Indication: Uveitis
     Route: 048
     Dates: start: 202109
  3. PREDNISONE [Concomitant]
     Active Substance: PREDNISONE
     Indication: Product used for unknown indication
     Dosage: DAILY
  4. PREDNISONE [Concomitant]
     Active Substance: PREDNISONE
     Dosage: DAILY
  5. MODERNA COVID-19 VACCINE [Concomitant]
     Active Substance: CX-024414
     Indication: COVID-19 immunisation
     Route: 030

REACTIONS (10)
  - Allergy to metals [Unknown]
  - Vein collapse [Unknown]
  - Rheumatoid arthritis [Recovering/Resolving]
  - Uveitis [Recovering/Resolving]
  - Tic [Not Recovered/Not Resolved]
  - Colitis ulcerative [Unknown]
  - Irritable bowel syndrome [Unknown]
  - Sjogren^s syndrome [Unknown]
  - Crohn^s disease [Unknown]
  - Joint injury [Unknown]

NARRATIVE: CASE EVENT DATE: 20200101
